FAERS Safety Report 5601839-7 (Version None)
Quarter: 2008Q1

REPORT INFORMATION
  Report Type: 
  Country: None (occurrence: None)
  Receive Date: 20080124
  Receipt Date: 20080117
  Transmission Date: 20080703
  Serious: Yes (Hospitalization)
  Sender: FDA-Public Use
  Company Number: JP-PFIZER INC-2007100728

PATIENT
  Age: 39 Year
  Sex: Female

DRUGS (18)
  1. ATARAX [Suspect]
     Indication: PRURITUS
     Dosage: TEXT:25-50MG
     Route: 030
     Dates: start: 20071022, end: 20071028
  2. LAMISIL [Suspect]
     Indication: FUNGAL SKIN INFECTION
     Route: 048
     Dates: start: 20071024, end: 20071025
  3. VOLTAREN - SLOW RELEASE ^NOVARTIS^ [Suspect]
     Indication: DERMATITIS
     Route: 048
  4. VOLTAREN - SLOW RELEASE ^NOVARTIS^ [Suspect]
     Route: 048
     Dates: start: 20071001, end: 20071029
  5. CRAVIT [Suspect]
     Indication: CYSTITIS
     Route: 048
     Dates: start: 20071022, end: 20071026
  6. POLARAMINE [Suspect]
     Indication: PRURITUS
     Route: 048
     Dates: start: 20071016, end: 20071026
  7. PENTAGIN [Suspect]
     Indication: DERMATITIS
     Dosage: TEXT:15-30 MG
     Route: 030
     Dates: start: 20071023, end: 20071029
  8. PREDONINE [Concomitant]
     Route: 048
     Dates: start: 20071023, end: 20071030
  9. BEZATOL - SLOW RELEASE [Concomitant]
     Route: 048
  10. FAMOTIDINE [Concomitant]
     Route: 048
  11. EBASTEL [Concomitant]
     Route: 048
  12. CANDESARTAN CILEXETIL [Concomitant]
     Route: 048
  13. THEO-DUR [Concomitant]
     Route: 048
  14. HALCION [Concomitant]
     Route: 048
  15. SEROQUEL [Concomitant]
     Route: 048
  16. SILECE [Concomitant]
     Route: 048
  17. SEPAZON [Concomitant]
     Route: 048
  18. TOLEDOMIN [Concomitant]
     Route: 048

REACTIONS (1)
  - HEPATIC FUNCTION ABNORMAL [None]
